FAERS Safety Report 9822539 (Version 1)
Quarter: 2014Q1

REPORT INFORMATION
  Report Type: Spontaneous
  Country: US (occurrence: US)
  Receive Date: 20140116
  Receipt Date: 20140116
  Transmission Date: 20141002
  Serious: No
  Sender: FDA-Public Use
  Company Number: US-009507513-1401USA006135

PATIENT
  Sex: Female

DRUGS (2)
  1. JANUVIA [Suspect]
     Dosage: 100 MG, ONCE DAILY
     Route: 048
  2. JANUVIA [Suspect]
     Dosage: 50 MG, ONCE DAILY
     Route: 048

REACTIONS (2)
  - Blood glucose increased [Unknown]
  - Nausea [Unknown]
